FAERS Safety Report 13910570 (Version 1)
Quarter: 2017Q3

REPORT INFORMATION
  Report Type: Spontaneous
  Country: BR (occurrence: BR)
  Receive Date: 20170828
  Receipt Date: 20170828
  Transmission Date: 20171127
  Serious: Yes (Hospitalization)
  Sender: FDA-Public Use
  Company Number: BR-ELI_LILLY_AND_COMPANY-BR201708008014

PATIENT
  Sex: Female

DRUGS (1)
  1. HUMULIN R [Suspect]
     Active Substance: INSULIN HUMAN
     Indication: PRODUCT USED FOR UNKNOWN INDICATION
     Dosage: 1 DF, QID
     Route: 065

REACTIONS (9)
  - Fracture [Unknown]
  - Retinal vascular disorder [Unknown]
  - Visual impairment [Unknown]
  - Injection site bruising [Unknown]
  - Coma [Unknown]
  - Blister [Unknown]
  - Fall [Unknown]
  - Injection site swelling [Unknown]
  - Nosocomial infection [Unknown]
